FAERS Safety Report 25031449 (Version 2)
Quarter: 2025Q2

REPORT INFORMATION
  Report Type: Spontaneous
  Country: CA (occurrence: CA)
  Receive Date: 20250303
  Receipt Date: 20250526
  Transmission Date: 20250716
  Serious: Yes (Hospitalization, Other)
  Sender: CELLTRION
  Company Number: CA-PFIZER INC-202201009777

PATIENT

DRUGS (155)
  1. INFLIXIMAB [Suspect]
     Active Substance: INFLIXIMAB
     Indication: Crohn^s disease
     Route: 042
  2. AZITHROMYCIN [Suspect]
     Active Substance: AZITHROMYCIN
  3. CIPROFLOXACIN [Suspect]
     Active Substance: CIPROFLOXACIN
     Indication: Pyrexia
     Route: 042
  4. CIPROFLOXACIN [Suspect]
     Active Substance: CIPROFLOXACIN
     Route: 065
  5. DIFLUCAN [Suspect]
     Active Substance: FLUCONAZOLE
     Indication: Oral candidiasis
  6. HYDROMORPHONE HYDROCHLORIDE [Suspect]
     Active Substance: HYDROMORPHONE HYDROCHLORIDE
  7. HYDROMORPHONE HYDROCHLORIDE [Suspect]
     Active Substance: HYDROMORPHONE HYDROCHLORIDE
     Route: 065
  8. METHYLPREDNISOLONE SODIUM SUCCINATE [Suspect]
     Active Substance: METHYLPREDNISOLONE SODIUM SUCCINATE
  9. METRONIDAZOLE [Suspect]
     Active Substance: METRONIDAZOLE
  10. MIDAZOLAM [Suspect]
     Active Substance: MIDAZOLAM
  11. PANTOPRAZOLE [Suspect]
     Active Substance: PANTOPRAZOLE
  12. POTASSIUM CHLORIDE [Suspect]
     Active Substance: POTASSIUM CHLORIDE
  13. SODIUM BICARBONATE [Suspect]
     Active Substance: SODIUM BICARBONATE
  14. FLUCONAZOLE [Suspect]
     Active Substance: FLUCONAZOLE
  15. HYDROCORTISONE [Suspect]
     Active Substance: HYDROCORTISONE
  16. BACTERIOSTATIC SODIUM CHLORIDE [Suspect]
     Active Substance: SODIUM CHLORIDE
     Route: 045
  17. ATROPINE SULFATE\DIPHENOXYLATE HYDROCHLORIDE [Suspect]
     Active Substance: ATROPINE SULFATE\DIPHENOXYLATE HYDROCHLORIDE
  18. LOMOTIL [Suspect]
     Active Substance: ATROPINE SULFATE\DIPHENOXYLATE HYDROCHLORIDE
     Route: 048
  19. FENTANYL CITRATE [Suspect]
     Active Substance: FENTANYL CITRATE
  20. ACETAMINOPHEN [Suspect]
     Active Substance: ACETAMINOPHEN
  21. ALIGN [Suspect]
     Active Substance: BIFIDOBACTERIUM LONGUM SUBSP. INFANTIS
  22. BACTRIM [Suspect]
     Active Substance: SULFAMETHOXAZOLE\TRIMETHOPRIM
  23. CALCIUM CARBONATE [Suspect]
     Active Substance: CALCIUM CARBONATE
  24. DILAUDID [Suspect]
     Active Substance: HYDROMORPHONE HYDROCHLORIDE
  25. ENTYVIO [Suspect]
     Active Substance: VEDOLIZUMAB
     Indication: Colitis ulcerative
     Route: 042
  26. ENTYVIO [Suspect]
     Active Substance: VEDOLIZUMAB
     Route: 042
  27. ENTYVIO [Suspect]
     Active Substance: VEDOLIZUMAB
     Route: 065
  28. ENTYVIO [Suspect]
     Active Substance: VEDOLIZUMAB
     Indication: Colitis ulcerative
  29. ERGOCALCIFEROL [Suspect]
     Active Substance: ERGOCALCIFEROL
  30. FENTANYL [Suspect]
     Active Substance: FENTANYL
     Indication: Colitis
     Route: 042
  31. FENTANYL [Suspect]
     Active Substance: FENTANYL
     Route: 042
  32. HUMIRA [Suspect]
     Active Substance: ADALIMUMAB
     Route: 058
  33. MESALAMINE [Suspect]
     Active Substance: MESALAMINE
     Indication: Proctitis
  34. MESALAMINE [Suspect]
     Active Substance: MESALAMINE
     Indication: Colitis ulcerative
  35. MESALAMINE [Suspect]
     Active Substance: MESALAMINE
     Indication: Colitis
  36. MIDAZOLAM HYDROCHLORIDE [Suspect]
     Active Substance: MIDAZOLAM HYDROCHLORIDE
     Indication: Seizure
  37. MIDAZOLAM HYDROCHLORIDE [Suspect]
     Active Substance: MIDAZOLAM HYDROCHLORIDE
     Route: 065
  38. MORPHINE [Suspect]
     Active Substance: MORPHINE
  39. OXYBUTYNIN CHLORIDE [Suspect]
     Active Substance: OXYBUTYNIN CHLORIDE
  40. REMICADE [Suspect]
     Active Substance: INFLIXIMAB
     Indication: Colitis ulcerative
     Route: 042
  41. SUCRALFATE [Suspect]
     Active Substance: SUCRALFATE
  42. CHOLECALCIFEROL [Suspect]
     Active Substance: CHOLECALCIFEROL
  43. ZOPICLONE [Suspect]
     Active Substance: ZOPICLONE
  44. ACETAMINOPHEN\CODEINE PHOSPHATE [Suspect]
     Active Substance: ACETAMINOPHEN\CODEINE PHOSPHATE
  45. PROPOXYPHENE HYDROCHLORIDE [Suspect]
     Active Substance: PROPOXYPHENE HYDROCHLORIDE
  46. ASPIRIN [Suspect]
     Active Substance: ASPIRIN
  47. ASPIRIN\CITRIC ACID MONOHYDRATE\SODIUM BICARBONATE [Suspect]
     Active Substance: ASPIRIN\CITRIC ACID MONOHYDRATE\SODIUM BICARBONATE
  48. ALPRAZOLAM [Suspect]
     Active Substance: ALPRAZOLAM
  49. AMOXICILLIN [Suspect]
     Active Substance: AMOXICILLIN
  50. ATORVASTATIN CALCIUM [Suspect]
     Active Substance: ATORVASTATIN CALCIUM
  51. ATROPINE SULFATE\DIPHENOXYLATE [Suspect]
     Active Substance: ATROPINE SULFATE\DIPHENOXYLATE
     Route: 048
  52. ATROPINE SULFATE\DIPHENOXYLATE [Suspect]
     Active Substance: ATROPINE SULFATE\DIPHENOXYLATE
     Route: 048
  53. ATROPINE SULFATE\DIPHENOXYLATE [Suspect]
     Active Substance: ATROPINE SULFATE\DIPHENOXYLATE
     Route: 048
  54. ATROPINE SULFATE\DIPHENOXYLATE [Suspect]
     Active Substance: ATROPINE SULFATE\DIPHENOXYLATE
     Route: 048
  55. BENZYDAMINE [Suspect]
     Active Substance: BENZYDAMINE
  56. BETAMETHASONE VALERATE [Suspect]
     Active Substance: BETAMETHASONE VALERATE
  57. BIAXIN [Suspect]
     Active Substance: CLARITHROMYCIN
     Route: 065
  58. BIAXIN [Suspect]
     Active Substance: CLARITHROMYCIN
     Route: 065
  59. BIFIDOBACTERIUM LONGUM [Suspect]
     Active Substance: BIFIDOBACTERIUM LONGUM
  60. BISACODYL [Suspect]
     Active Substance: BISACODYL
  61. BUDESONIDE [Suspect]
     Active Substance: BUDESONIDE
  62. CALCITRIOL\CALCIUM CARBONATE\ZINC [Suspect]
     Active Substance: CALCITRIOL\CALCIUM CARBONATE\ZINC
  63. CLARITHROMYCIN [Suspect]
     Active Substance: CLARITHROMYCIN
  64. CLOTRIMAZOLE [Suspect]
     Active Substance: CLOTRIMAZOLE
  65. CORTENEMA [Suspect]
     Active Substance: HYDROCORTISONE
  66. CORTENEMA [Suspect]
     Active Substance: HYDROCORTISONE
  67. CUPRIC OXIDE\FOLIC ACID\NIACIN\ZINC OXIDE [Suspect]
     Active Substance: CUPRIC OXIDE\FOLIC ACID\NIACIN\ZINC OXIDE
  68. DESONIDE [Suspect]
     Active Substance: DESONIDE
  69. DIPHENHYDRAMINE [Suspect]
     Active Substance: DIPHENHYDRAMINE
  70. DIPHENHYDRAMINE [Suspect]
     Active Substance: DIPHENHYDRAMINE
     Route: 048
  71. ERTAPENEM SODIUM [Suspect]
     Active Substance: ERTAPENEM SODIUM
     Route: 045
  72. FLOVENT [Suspect]
     Active Substance: FLUTICASONE PROPIONATE
  73. FLUTICASONE PROPIONATE [Suspect]
     Active Substance: FLUTICASONE PROPIONATE
  74. FLUTICASONE PROPIONATE\SALMETEROL XINAFOATE [Suspect]
     Active Substance: FLUTICASONE PROPIONATE\SALMETEROL XINAFOATE
  75. FRUCTOSE [Suspect]
     Active Substance: FRUCTOSE
  76. GLYCERIN [Suspect]
     Active Substance: GLYCERIN
  77. NITROGLYCERIN [Suspect]
     Active Substance: NITROGLYCERIN
     Route: 048
  78. HYDROCHLOROTHIAZIDE [Suspect]
     Active Substance: HYDROCHLOROTHIAZIDE
  79. HYDROCHLOROTHIAZIDE [Suspect]
     Active Substance: HYDROCHLOROTHIAZIDE
     Route: 058
  80. GRAMICIDIN\NEOMYCIN\POLYMYXIN B SULFATE [Suspect]
     Active Substance: GRAMICIDIN\NEOMYCIN\POLYMYXIN B SULFATE
  81. STREPTOMYCIN SULFATE [Suspect]
     Active Substance: STREPTOMYCIN SULFATE
  82. LOPERAMIDE HYDROCHLORIDE [Suspect]
     Active Substance: LOPERAMIDE HYDROCHLORIDE
  83. LOPERAMIDE HYDROCHLORIDE [Suspect]
     Active Substance: LOPERAMIDE HYDROCHLORIDE
     Route: 048
  84. LOPERAMIDE HYDROCHLORIDE [Suspect]
     Active Substance: LOPERAMIDE HYDROCHLORIDE
     Route: 048
  85. LOPERAMIDE HYDROCHLORIDE [Suspect]
     Active Substance: LOPERAMIDE HYDROCHLORIDE
     Route: 048
  86. POLYETHYLENE GLYCOL\POTASSIUM CHLORIDE\SODIUM BICARBONATE\SODIUM CHLOR [Suspect]
     Active Substance: POLYETHYLENE GLYCOL\POTASSIUM CHLORIDE\SODIUM BICARBONATE\SODIUM CHLORIDE
  87. MAGNESIUM CARBONATE [Suspect]
     Active Substance: MAGNESIUM CARBONATE
  88. MAGNESIUM HYDROXIDE [Suspect]
     Active Substance: MAGNESIUM HYDROXIDE
  89. MAGNESIUM [Suspect]
     Active Substance: MAGNESIUM
  90. MUPIROCIN [Suspect]
     Active Substance: MUPIROCIN
     Route: 061
  91. NADOLOL [Suspect]
     Active Substance: NADOLOL
  92. NICODERM CQ [Suspect]
     Active Substance: NICOTINE
  93. NICOTINAMIDE [Suspect]
     Active Substance: NIACINAMIDE
  94. NICOTINE [Suspect]
     Active Substance: NICOTINE
  95. MAGNESIUM OXIDE [Suspect]
     Active Substance: MAGNESIUM OXIDE
  96. MAGNESIUM SULFATE [Suspect]
     Active Substance: MAGNESIUM SULFATE
  97. PREDNISONE [Suspect]
     Active Substance: PREDNISONE
  98. REFRESH TEARS [Suspect]
     Active Substance: CARBOXYMETHYLCELLULOSE SODIUM
  99. SIMVASTATIN [Suspect]
     Active Substance: SIMVASTATIN
  100. SODIUM BICARBONATE\SODIUM CHLORIDE [Suspect]
     Active Substance: SODIUM BICARBONATE\SODIUM CHLORIDE
  101. CARBOXYMETHYLCELLULOSE SODIUM [Suspect]
     Active Substance: CARBOXYMETHYLCELLULOSE SODIUM
  102. TRIAMCINOLONE ACETONIDE [Suspect]
     Active Substance: TRIAMCINOLONE ACETONIDE
  103. UBIDECARENONE [Suspect]
     Active Substance: UBIDECARENONE
  104. VITAMIN D3 [Suspect]
     Active Substance: CHOLECALCIFEROL
  105. XANTOFYL PALMITATE [Suspect]
     Active Substance: XANTOFYL PALMITATE
     Route: 048
  106. ZEAXANTHIN [Suspect]
     Active Substance: ZEAXANTHIN
     Route: 048
  107. ZINC OXIDE [Suspect]
     Active Substance: ZINC OXIDE
  108. ACETAMINOPHEN\PROPOXYPHENE HYDROCHLORIDE [Suspect]
     Active Substance: ACETAMINOPHEN\PROPOXYPHENE HYDROCHLORIDE
  109. AZITHROMYCIN ANHYDROUS [Suspect]
     Active Substance: AZITHROMYCIN ANHYDROUS
  110. SUCRALFATE [Suspect]
     Active Substance: SUCRALFATE
  111. SULFAMETHOXAZOLE\TRIMETHOPRIM [Suspect]
     Active Substance: SULFAMETHOXAZOLE\TRIMETHOPRIM
  112. SULFAMETHOXAZOLE [Suspect]
     Active Substance: SULFAMETHOXAZOLE
  113. ATROPINE SULFATE [Suspect]
     Active Substance: ATROPINE SULFATE
  114. METRONIDAZOLE [Suspect]
     Active Substance: METRONIDAZOLE
  115. SODIUM BICARBONATE [Suspect]
     Active Substance: SODIUM BICARBONATE
  116. SUCRALFATE [Suspect]
     Active Substance: SUCRALFATE
  117. CALCIUM ASCORBATE [Suspect]
     Active Substance: CALCIUM ASCORBATE
  118. CETIRIZINE HYDROCHLORIDE [Suspect]
     Active Substance: CETIRIZINE HYDROCHLORIDE
  119. CUPRIC OXIDE\FOLIC ACID\NIACIN\ZINC OXIDE [Suspect]
     Active Substance: CUPRIC OXIDE\FOLIC ACID\NIACIN\ZINC OXIDE
  120. .ALPHA.-TOCOPHEROL, D- [Suspect]
     Active Substance: .ALPHA.-TOCOPHEROL, D-
  121. DEXPANTHENOL [Suspect]
     Active Substance: DEXPANTHENOL
  122. FOLIC ACID [Suspect]
     Active Substance: FOLIC ACID
  123. GLYCERIN [Suspect]
     Active Substance: GLYCERIN
  124. RETINOL [Suspect]
     Active Substance: RETINOL
  125. GUAIFENESIN [Suspect]
     Active Substance: GUAIFENESIN
  126. HABITROL [Suspect]
     Active Substance: NICOTINE
  127. CALCITRIOL [Suspect]
     Active Substance: CALCITRIOL
  128. POLYETHYLENE GLYCOL 3350\POTASSIUM CHLORIDE\SODIUM BICARBONATE\SODIUM [Suspect]
     Active Substance: POLYETHYLENE GLYCOL 3350\POTASSIUM CHLORIDE\SODIUM BICARBONATE\SODIUM CHLORIDE
  129. PARA-AMINOSALICYLIC ACID [Suspect]
     Active Substance: AMINOSALICYLIC ACID
  130. PREGABALIN [Suspect]
     Active Substance: PREGABALIN
  131. ISONIAZID\PYRIDOXINE\SULFAMETHOXAZOLE\TRIMETHOPRIM [Suspect]
     Active Substance: ISONIAZID\PYRIDOXINE\SULFAMETHOXAZOLE\TRIMETHOPRIM
  132. ACETAMINOPHEN AND DEXTROMETHORPHAN HYDROBROMIDE [Suspect]
     Active Substance: ACETAMINOPHEN\DEXTROMETHORPHAN HYDROBROMIDE
  133. ACETAMINOPHEN\PSEUDOEPHEDRINE [Suspect]
     Active Substance: ACETAMINOPHEN\PSEUDOEPHEDRINE
  134. BETAMETHASONE [Suspect]
     Active Substance: BETAMETHASONE
  135. CALCIUM CARBONATE\CHOLECALCIFEROL [Suspect]
     Active Substance: CALCIUM CARBONATE\CHOLECALCIFEROL
  136. AMBROXOL HYDROCHLORIDE [Suspect]
     Active Substance: AMBROXOL HYDROCHLORIDE
  137. ARNUITY ELLIPTA [Suspect]
     Active Substance: FLUTICASONE FUROATE
  138. FLUTICASONE FUROATE [Suspect]
     Active Substance: FLUTICASONE FUROATE
  139. BENADRYL [Suspect]
     Active Substance: DIPHENHYDRAMINE HYDROCHLORIDE
  140. BROMHEXINE HYDROCHLORIDE [Suspect]
     Active Substance: BROMHEXINE HYDROCHLORIDE
  141. CALCIUM GLUCONATE [Suspect]
     Active Substance: CALCIUM GLUCONATE
     Route: 065
  142. CARBOXYMETHYLCELLULOSE SODIUM [Suspect]
     Active Substance: CARBOXYMETHYLCELLULOSE SODIUM
  143. CLOFIBRATE [Suspect]
     Active Substance: CLOFIBRATE
  144. ENTOCORT [Suspect]
     Active Substance: BUDESONIDE
     Route: 048
  145. FRAMYCETIN SULFATE [Suspect]
     Active Substance: FRAMYCETIN SULFATE
  146. HYDROMORPHONE HYDROCHLORIDE [Suspect]
     Active Substance: HYDROMORPHONE HYDROCHLORIDE
  147. ICHTHAMMOL\ZINC OXIDE [Suspect]
     Active Substance: ICHTHAMMOL\ZINC OXIDE
  148. HERBALS [Suspect]
     Active Substance: HERBALS
  149. PENTASA [Suspect]
     Active Substance: MESALAMINE
     Indication: Colitis
  150. PULMICORT TURBUHALER [Suspect]
     Active Substance: BUDESONIDE
     Route: 042
  151. SALIX ALBA (WILLOW) BARK EXTRACT [Suspect]
     Active Substance: SALIX ALBA (WILLOW) BARK EXTRACT
     Route: 042
  152. VALSARTAN [Suspect]
     Active Substance: VALSARTAN
  153. LUTEIN\ZEAXANTHIN [Suspect]
     Active Substance: LUTEIN\ZEAXANTHIN
  154. SODIUM STEARATE [Suspect]
     Active Substance: SODIUM STEARATE
  155. AMOXICILLIN TRIHYDRATE [Suspect]
     Active Substance: AMOXICILLIN

REACTIONS (29)
  - Abdominal pain [Not Recovered/Not Resolved]
  - Anaemia [Not Recovered/Not Resolved]
  - Colitis [Not Recovered/Not Resolved]
  - Constipation [Not Recovered/Not Resolved]
  - Erythema [Not Recovered/Not Resolved]
  - Female genital tract fistula [Not Recovered/Not Resolved]
  - Frequent bowel movements [Not Recovered/Not Resolved]
  - Haematochezia [Not Recovered/Not Resolved]
  - Headache [Not Recovered/Not Resolved]
  - Nausea [Not Recovered/Not Resolved]
  - Oral candidiasis [Not Recovered/Not Resolved]
  - Pain [Not Recovered/Not Resolved]
  - Proctitis [Unknown]
  - Pyrexia [Not Recovered/Not Resolved]
  - Radiculopathy [Not Recovered/Not Resolved]
  - Rectal haemorrhage [Not Recovered/Not Resolved]
  - Vaginal discharge [Not Recovered/Not Resolved]
  - Vaginal flatulence [Not Recovered/Not Resolved]
  - Chronic sinusitis [Not Recovered/Not Resolved]
  - Weight decreased [Not Recovered/Not Resolved]
  - Infusion related reaction [Not Recovered/Not Resolved]
  - Macular degeneration [Not Recovered/Not Resolved]
  - Malaise [Not Recovered/Not Resolved]
  - Dyspepsia [Not Recovered/Not Resolved]
  - Procedural pain [Not Recovered/Not Resolved]
  - Paraesthesia oral [Not Recovered/Not Resolved]
  - Drug ineffective [Not Recovered/Not Resolved]
  - Therapeutic product effect incomplete [Not Recovered/Not Resolved]
  - Off label use [Unknown]
